FAERS Safety Report 19385047 (Version 2)
Quarter: 2021Q3

REPORT INFORMATION
  Report Type: Spontaneous
  Country: US (occurrence: US)
  Receive Date: 20210608
  Receipt Date: 20210712
  Transmission Date: 20211014
  Serious: No
  Sender: FDA-Public Use
  Company Number: US-AMGEN-USASP2021085968

PATIENT
  Age: 50 Year
  Sex: Female
  Weight: 161.8 kg

DRUGS (3)
  1. ENBREL [Suspect]
     Active Substance: ETANERCEPT
     Indication: PSORIASIS
     Dosage: 50 MILLIGRAM, QWK
     Route: 065
     Dates: end: 202012
  2. ENBREL [Suspect]
     Active Substance: ETANERCEPT
     Dosage: 50 MILLIGRAM, QWK
     Route: 065
     Dates: start: 2021
  3. ENBREL [Suspect]
     Active Substance: ETANERCEPT
     Dosage: 50 MILLIGRAM, QWK
     Route: 065
     Dates: start: 202101, end: 20210311

REACTIONS (10)
  - Headache [Unknown]
  - Joint swelling [Unknown]
  - Injection site pain [Unknown]
  - Arthralgia [Unknown]
  - Injection site swelling [Unknown]
  - Pain in extremity [Unknown]
  - Injection site rash [Unknown]
  - Injection site pruritus [Unknown]
  - COVID-19 [Recovered/Resolved]
  - Peripheral swelling [Unknown]

NARRATIVE: CASE EVENT DATE: 2021
